FAERS Safety Report 14870462 (Version 1)
Quarter: 2018Q2

REPORT INFORMATION
  Report Type: Spontaneous
  Country: US (occurrence: US)
  Receive Date: 20180423
  Receipt Date: 20180423
  Transmission Date: 20180711
  Serious: No
  Sender: FDA-Public Use
  Company Number: None

PATIENT
  Age: 66 Year
  Sex: Female
  Weight: 72.12 kg

DRUGS (1)
  1. BELATACEPT, 362.5 MG [Suspect]
     Active Substance: BELATACEPT
     Indication: CYTOMEGALOVIRUS INFECTION
     Route: 042

REACTIONS (3)
  - Infusion site erythema [None]
  - Infusion related reaction [None]
  - Erythema [None]

NARRATIVE: CASE EVENT DATE: 20180423
